FAERS Safety Report 7772625-7 (Version None)
Quarter: 2011Q3

REPORT INFORMATION
  Report Type: 
  Country: None (occurrence: None)
  Receive Date: 20110922
  Receipt Date: 20110112
  Transmission Date: 20111222
  Serious: No
  Sender: FDA-Public Use
  Company Number: US-ASTRAZENECA-2011SE02094

PATIENT
  Age: 43 Year
  Sex: Female

DRUGS (4)
  1. RESTERIL [Concomitant]
     Indication: SLEEP DISORDER
  2. ATIVAN [Concomitant]
  3. SEROQUEL [Suspect]
     Indication: BIPOLAR DISORDER
     Dosage: 200 MG IN THE MORNING AND 400 MG AT NIGHT
     Route: 048
  4. TRILEPTAL [Concomitant]

REACTIONS (1)
  - PHARYNGEAL OEDEMA [None]
